FAERS Safety Report 16862066 (Version 1)
Quarter: 2019Q4

REPORT INFORMATION
  Report Type: Spontaneous
  Country: CA (occurrence: CA)
  Receive Date: 20190927
  Receipt Date: 20190927
  Transmission Date: 20200122
  Serious: No
  Sender: FDA-Public Use
  Company Number: None

PATIENT
  Age: 55 Year
  Sex: Female
  Weight: 85.05 kg

DRUGS (1)
  1. ZOFRAN [Suspect]
     Active Substance: ONDANSETRON HYDROCHLORIDE
     Indication: ABDOMINAL PAIN
     Dates: start: 20190926, end: 20190926

REACTIONS (6)
  - Somnolence [None]
  - Headache [None]
  - Vision blurred [None]
  - Fatigue [None]
  - Diarrhoea [None]
  - Blood pressure increased [None]

NARRATIVE: CASE EVENT DATE: 20190926
